FAERS Safety Report 5423612-5 (Version None)
Quarter: 2007Q3

REPORT INFORMATION
  Report Type: 
  Country: None (occurrence: None)
  Receive Date: 20070725
  Receipt Date: 20060907
  Transmission Date: 20080115
  Serious: Yes (Other)
  Sender: FDA-Public Use
  Company Number: SU-2006-005391

PATIENT
  Age: 57 Year
  Sex: Male

DRUGS (1)
  1. WELCHOL [Suspect]
     Indication: DRUG USE FOR UNKNOWN INDICATION
     Dosage: PER ORAL
     Route: 048
     Dates: end: 20060601

REACTIONS (1)
  - BLOOD TRIGLYCERIDES INCREASED [None]
